FAERS Safety Report 21146459 (Version 1)
Quarter: 2022Q3

REPORT INFORMATION
  Report Type: Spontaneous
  Country: US (occurrence: US)
  Receive Date: 20220729
  Receipt Date: 20220729
  Transmission Date: 20221027
  Serious: Yes (Other)
  Sender: FDA-Public Use
  Company Number: US-SUN PHARMACEUTICAL INDUSTRIES LTD-2022R1-346230

PATIENT
  Age: 76 Year
  Sex: Male

DRUGS (12)
  1. DEXMEDETOMIDINE [Interacting]
     Active Substance: DEXMEDETOMIDINE
     Indication: Intestinal pseudo-obstruction
     Dosage: UNK (1.4 MCG/KG/H)
     Route: 065
  2. NEOSTIGMINE [Interacting]
     Active Substance: NEOSTIGMINE
     Indication: Intestinal pseudo-obstruction
     Dosage: UNK (0.4 MG/HR)
     Route: 042
  3. ACETAMINOPHEN [Concomitant]
     Active Substance: ACETAMINOPHEN
     Indication: Pain
     Dosage: UNK
     Route: 065
  4. BISACODYL [Concomitant]
     Active Substance: BISACODYL
     Indication: Abdominal discomfort
     Dosage: UNK
     Route: 065
  5. CLONIDINE [Concomitant]
     Active Substance: CLONIDINE
     Indication: Pain
     Dosage: 0.1 MILLIGRAM, TID
     Route: 065
  6. CLONIDINE [Concomitant]
     Active Substance: CLONIDINE
     Dosage: 0.2 MILLIGRAM, TID
     Route: 065
  7. DOCUSATE [Concomitant]
     Active Substance: DOCUSATE
     Indication: Abdominal discomfort
     Dosage: UNK
     Route: 065
  8. GABAPENTIN [Concomitant]
     Active Substance: GABAPENTIN
     Indication: Pain
     Dosage: 100 MILLIGRAM, TID
     Route: 065
  9. METOCLOPRAMIDE [Concomitant]
     Active Substance: METOCLOPRAMIDE
     Indication: Intestinal pseudo-obstruction
     Dosage: 10 MILLIGRAM, QID
     Route: 042
  10. OXYCODONE [Concomitant]
     Active Substance: OXYCODONE
     Indication: Intestinal pseudo-obstruction
     Dosage: UNK (10 MG EVERY 4 HOURS)
     Route: 048
  11. POLYETHYLENE GLYCOL [Concomitant]
     Active Substance: POLYETHYLENE GLYCOL
     Indication: Abdominal discomfort
     Dosage: UNK
     Route: 065
  12. SENNA [Concomitant]
     Active Substance: SENNA LEAF\SENNOSIDES\SENNOSIDES A AND B
     Indication: Abdominal discomfort
     Dosage: UNK
     Route: 065

REACTIONS (4)
  - Drug interaction [Unknown]
  - Bradycardia [Recovered/Resolved]
  - Hypotension [Recovered/Resolved]
  - Cardiac arrest [Recovered/Resolved]
